FAERS Safety Report 16996469 (Version 1)
Quarter: 2019Q4

REPORT INFORMATION
  Report Type: Report from Study
  Country: None (occurrence: LB)
  Receive Date: 20191106
  Receipt Date: 20191106
  Transmission Date: 20200122
  Serious: Yes (Disabling)
  Sender: FDA-Public Use
  Company Number: LB-ABBVIE-19K-093-2944265-00

PATIENT
  Age: 40 Year
  Sex: Female
  Weight: 60 kg

DRUGS (4)
  1. PANADOL [Concomitant]
     Active Substance: ACETAMINOPHEN
     Indication: PRODUCT USED FOR UNKNOWN INDICATION
     Dosage: FREQUENCY TEXT-WHEN NECESSARY
  2. HUMIRA [Suspect]
     Active Substance: ADALIMUMAB
     Indication: RHEUMATOID ARTHRITIS
     Route: 058
     Dates: start: 20190925, end: 20191002
  3. ADVIL [Concomitant]
     Active Substance: IBUPROFEN
     Indication: PRODUCT USED FOR UNKNOWN INDICATION
     Dosage: FREQUENCY TEXT-WHEN NECESSARY
  4. HUMIRA [Suspect]
     Active Substance: ADALIMUMAB
     Indication: RHEUMATOID ARTHRITIS
     Route: 058
     Dates: start: 20191030

REACTIONS (11)
  - Gait inability [Recovered/Resolved]
  - Oedema peripheral [Not Recovered/Not Resolved]
  - Inappropriate schedule of product administration [Recovered/Resolved]
  - Arthralgia [Recovering/Resolving]
  - Chills [Recovered/Resolved]
  - Stress [Recovering/Resolving]
  - Hot flush [Recovered/Resolved]
  - Anxiety [Not Recovered/Not Resolved]
  - Fungal infection [Recovered/Resolved]
  - Vision blurred [Recovering/Resolving]
  - Drug ineffective [Not Recovered/Not Resolved]

NARRATIVE: CASE EVENT DATE: 2019
